FAERS Safety Report 4676447-5 (Version None)
Quarter: 2005Q2

REPORT INFORMATION
  Report Type: 
  Country: None (occurrence: None)
  Receive Date: 20050527
  Receipt Date: 20050513
  Transmission Date: 20051028
  Serious: Yes (Hospitalization)
  Sender: FDA-Public Use
  Company Number: CH-JNJFOC-20050103424

PATIENT
  Sex: Female

DRUGS (10)
  1. TOPAMAX [Suspect]
     Route: 065
  2. TOPAMAX [Suspect]
     Route: 065
  3. TOPAMAX [Suspect]
     Route: 065
  4. TOPAMAX [Suspect]
     Indication: DRUG USE FOR UNKNOWN INDICATION
     Route: 065
  5. ZYPREXA [Concomitant]
     Route: 065
  6. ZYPREXA [Concomitant]
     Route: 065
  7. ZYPREXA [Concomitant]
     Route: 065
  8. ZYPREXA [Concomitant]
     Route: 065
  9. ZYPREXA [Concomitant]
     Route: 065
  10. ZYPREXA [Concomitant]
     Indication: PSYCHOTIC DISORDER
     Route: 065

REACTIONS (1)
  - PSYCHOTIC DISORDER [None]
